FAERS Safety Report 10510037 (Version 1)
Quarter: 2014Q4

REPORT INFORMATION
  Report Type: Spontaneous
  Country: US (occurrence: None)
  Receive Date: 20141008
  Receipt Date: 20141008
  Transmission Date: 20150528
  Serious: Yes (Disabling)
  Sender: FDA-Public Use
  Company Number: 2559446

PATIENT
  Age: 67 Year
  Sex: Female

DRUGS (6)
  1. (VANCOMYCIN HYDROCHLORIDE) [Suspect]
     Active Substance: VANCOMYCIN HYDROCHLORIDE
     Indication: PROPHYLAXIS
     Route: 031
  2. (PREDNISOLONE ACETATE) [Concomitant]
  3. (KETOROLAC TROMETHAMINE) [Concomitant]
  4. (LIDOCAINE HYDROCHLORIDE) [Suspect]
     Active Substance: LIDOCAINE HYDROCHLORIDE
     Indication: CATARACT OPERATION
     Route: 031
  5. (OFLOXACIN) [Concomitant]
  6. (VANCOMYCIN HYDROCHLORIDE) [Suspect]
     Active Substance: VANCOMYCIN HYDROCHLORIDE
     Indication: ENDOPHTHALMITIS
     Route: 031

REACTIONS (2)
  - Retinal vasculitis [None]
  - Blindness [None]
